FAERS Safety Report 4311352-5 (Version None)
Quarter: 2004Q1

REPORT INFORMATION
  Report Type: 
  Country: None (occurrence: None)
  Receive Date: 20040302
  Receipt Date: 20040106
  Transmission Date: 20041129
  Serious: No
  Sender: FDA-Public Use
  Company Number: 200323278BWH

PATIENT
  Age: 71 Year
  Sex: Male

DRUGS (9)
  1. LEVITRA [Suspect]
     Indication: ERECTILE DYSFUNCTION
     Dosage: 10 MG, PRN, ORAL
     Route: 048
     Dates: start: 20030909
  2. LEVITRA [Suspect]
     Indication: ERECTILE DYSFUNCTION
     Dosage: 10 MG, PRN, ORAL
     Route: 048
     Dates: start: 20030910
  3. LEVITRA [Suspect]
     Indication: ERECTILE DYSFUNCTION
     Dosage: 10 MG, PRN, ORAL
     Route: 048
     Dates: start: 20030910
  4. VIAGRA [Concomitant]
  5. DETROL [Concomitant]
  6. AMARYL [Concomitant]
  7. LIPITOR [Concomitant]
  8. ACTOS [Concomitant]
  9. INDAPAMIDE [Concomitant]

REACTIONS (2)
  - ERECTILE DYSFUNCTION [None]
  - SELF ESTEEM DECREASED [None]
